FAERS Safety Report 7714801-5 (Version None)
Quarter: 2011Q3

REPORT INFORMATION
  Report Type: 
  Country: None (occurrence: None)
  Receive Date: 20110810
  Receipt Date: 20110531
  Transmission Date: 20111222
  Serious: No
  Sender: FDA-Public Use
  Company Number: 1000021250

PATIENT
  Age: 53 Year
  Sex: Female

DRUGS (14)
  1. SAVELLA [Suspect]
     Indication: FIBROMYALGIA
     Dosage: SEE IMAGE
     Route: 048
     Dates: start: 20110207, end: 20110211
  2. SAVELLA [Suspect]
     Indication: FIBROMYALGIA
     Dosage: SEE IMAGE
     Route: 048
     Dates: start: 20110211, end: 20110217
  3. SAVELLA [Suspect]
     Indication: FIBROMYALGIA
     Dosage: SEE IMAGE
     Route: 048
     Dates: start: 20110304
  4. SAVELLA [Suspect]
     Indication: FIBROMYALGIA
     Dosage: SEE IMAGE
     Route: 048
     Dates: start: 20110218, end: 20110303
  5. PRILOSEC (OMEPRAZOLE) (OMEPRAZOLE) [Concomitant]
  6. PROPRANOLOL [Concomitant]
  7. WOMEN'S DAILY VITAMIN (NOS) (WOMEN'S DAILY VITAMIN (NOS)) (WOMEN'S DAI [Concomitant]
  8. ASPIRIN [Concomitant]
  9. VITAMIN E (VITAMIN E) (VITAMIN E) [Concomitant]
  10. ZANTAC (RANITIDINE) (RANITIDINE) [Concomitant]
  11. VITAMIN D3 (COLECALCIFEROL) (COLECALCIFEROL) [Concomitant]
  12. FISH OIL (FISH OIL) (FISH OIL) [Concomitant]
  13. PROGESTERONE VAGINAL CREAM (PROGESTERONE VAGINAL CREAM) (PROGESTERONE [Concomitant]
  14. CALCIUM (CALCIUM) (CALCIUM) [Concomitant]

REACTIONS (2)
  - HAEMORRHAGE [None]
  - INCREASED TENDENCY TO BRUISE [None]
